FAERS Safety Report 17433705 (Version 1)
Quarter: 2020Q1

REPORT INFORMATION
  Report Type: Spontaneous
  Country: US (occurrence: US)
  Receive Date: 20200219
  Receipt Date: 20200219
  Transmission Date: 20200409
  Serious: No
  Sender: FDA-Public Use
  Company Number: US-SHIRE-US202006286

PATIENT
  Sex: Male

DRUGS (2)
  1. CINRYZE [Suspect]
     Active Substance: HUMAN C1-ESTERASE INHIBITOR
     Indication: HEREDITARY ANGIOEDEMA
     Dosage: 1500 INTERNATIONAL UNIT, OTHER(EVERY 3 DAYS)
     Route: 050
     Dates: start: 20140923
  2. KALBITOR [Suspect]
     Active Substance: ECALLANTIDE
     Indication: HEREDITARY ANGIOEDEMA
     Dosage: 3 MILLILITER, AS REQ^D
     Route: 058
     Dates: start: 20130117

REACTIONS (3)
  - Prescribed overdose [Unknown]
  - Epicondylitis [Not Recovered/Not Resolved]
  - Influenza [Recovered/Resolved]
